FAERS Safety Report 5797271-6 (Version None)
Quarter: 2008Q3

REPORT INFORMATION
  Report Type: 
  Country: None (occurrence: None)
  Receive Date: 20080701
  Receipt Date: 20080620
  Transmission Date: 20090109
  Serious: Yes (Hospitalization)
  Sender: FDA-Public Use
  Company Number: CA-PFIZER INC-2008051815

PATIENT
  Age: 64 Year
  Sex: Female
  Weight: 53 kg

DRUGS (4)
  1. SU-011,248 [Suspect]
     Indication: ENDOMETRIAL CANCER
     Route: 048
     Dates: start: 20080311, end: 20080514
  2. GRAVOL TAB [Concomitant]
  3. NIFEDIPINE [Concomitant]
  4. TYLENOL [Concomitant]

REACTIONS (7)
  - ANOREXIA [None]
  - DYSPNOEA [None]
  - FATIGUE [None]
  - HAEMOGLOBIN [None]
  - HYPOXIA [None]
  - PLATELET COUNT [None]
  - THROMBOSIS [None]
